FAERS Safety Report 11098149 (Version 1)
Quarter: 2015Q2

REPORT INFORMATION
  Report Type: Spontaneous
  Country: PL (occurrence: PL)
  Receive Date: 20150507
  Receipt Date: 20150507
  Transmission Date: 20150821
  Serious: Yes (Other)
  Sender: FDA-Public Use
  Company Number: PL-BAYER-2015-182511

PATIENT
  Sex: Female

DRUGS (1)
  1. BETAFERON [Suspect]
     Active Substance: INTERFERON BETA-1B
     Dosage: UNK

REACTIONS (5)
  - Injection site pain [None]
  - Headache [None]
  - Disease recurrence [None]
  - Eye disorder [None]
  - Injection site erythema [None]

NARRATIVE: CASE EVENT DATE: 201411
